FAERS Safety Report 18262582 (Version 1)
Quarter: 2020Q3

REPORT INFORMATION
  Report Type: Spontaneous
  Country: US (occurrence: US)
  Receive Date: 20200911
  Receipt Date: 20200911
  Transmission Date: 20201103
  Serious: Yes (Hospitalization)
  Sender: FDA-Public Use
  Company Number: None

PATIENT
  Age: 59 Year
  Sex: Male

DRUGS (19)
  1. XELJANZ XR [Suspect]
     Active Substance: TOFACITINIB CITRATE
     Indication: RHEUMATOID ARTHRITIS
     Dosage: ?          OTHER DOSE:1 TAB;?
     Route: 048
     Dates: start: 20171223
  2. POTASSIMIN [Concomitant]
  3. PREDNISONE. [Concomitant]
     Active Substance: PREDNISONE
  4. AMLODIPINE [Suspect]
     Active Substance: AMLODIPINE BESYLATE
  5. PREVACID [Concomitant]
     Active Substance: LANSOPRAZOLE
  6. ZOLPIDEM [Concomitant]
     Active Substance: ZOLPIDEM TARTRATE
  7. AMLOD/OLMESA TABS 10?20 MGM (AMLODIPINE/OLMESRTAN MEDOXOMIL TAB) [Concomitant]
     Active Substance: AMLODIPINE BESYLATE\OLMESARTAN MEDOXOMIL
  8. ASPIRIN. [Suspect]
     Active Substance: ASPIRIN
  9. FUROSEMIDE   PLAVIX POTA [Concomitant]
  10. FISH OIL [Suspect]
     Active Substance: FISH OIL
  11. MULTIVITAMIN MEN [Concomitant]
  12. NAPROXEN SOD [Concomitant]
  13. VITAMIN B12 [Concomitant]
     Active Substance: CYANOCOBALAMIN
  14. ATORVASTATIN [Suspect]
     Active Substance: ATORVASTATIN
  15. CLOPIDOGREL [Suspect]
     Active Substance: CLOPIDOGREL BISULFATE
  16. GLUCOSAMINE [Concomitant]
     Active Substance: GLUCOSAMINE
  17. PLAVIX [Concomitant]
     Active Substance: CLOPIDOGREL BISULFATE
  18. TRAMADOL HCL [Concomitant]
     Active Substance: TRAMADOL HYDROCHLORIDE
  19. IRON [Concomitant]
     Active Substance: IRON

REACTIONS (1)
  - COVID-19 pneumonia [None]

NARRATIVE: CASE EVENT DATE: 20200904
